FAERS Safety Report 11805039 (Version 1)
Quarter: 2015Q4

REPORT INFORMATION
  Report Type: Spontaneous
  Country: US (occurrence: US)
  Receive Date: 20151205
  Receipt Date: 20151205
  Transmission Date: 20160305
  Serious: No
  Sender: FDA-Public Use
  Company Number: US-TEVA-615294USA

PATIENT
  Sex: Female
  Weight: 49.94 kg

DRUGS (1)
  1. TAKE ACTION [Suspect]
     Active Substance: LEVONORGESTREL
     Dates: start: 201511, end: 201511

REACTIONS (2)
  - Menstruation delayed [Unknown]
  - Metrorrhagia [Unknown]
